FAERS Safety Report 17091489 (Version 1)
Quarter: 2019Q4

REPORT INFORMATION
  Report Type: Spontaneous
  Country: US (occurrence: US)
  Receive Date: 20191129
  Receipt Date: 20191129
  Transmission Date: 20200122
  Serious: Yes (Other)
  Sender: FDA-Public Use
  Company Number: US-SUNOVION-2019SUN005182

PATIENT
  Sex: Female

DRUGS (1)
  1. LATUDA [Suspect]
     Active Substance: LURASIDONE HYDROCHLORIDE
     Dosage: 80 MG
     Route: 048
     Dates: start: 20191025

REACTIONS (4)
  - Depression [Unknown]
  - Feeling of despair [Unknown]
  - Discomfort [Unknown]
  - Restlessness [Unknown]

NARRATIVE: CASE EVENT DATE: 20191025
